APPROVED DRUG PRODUCT: FEXOFENADINE HYDROCHLORIDE
Active Ingredient: FEXOFENADINE HYDROCHLORIDE
Strength: 60MG
Dosage Form/Route: CAPSULE;ORAL
Application: A076169 | Product #001
Applicant: BARR LABORATORIES INC
Approved: Jul 13, 2005 | RLD: No | RS: No | Type: DISCN